FAERS Safety Report 13909055 (Version 2)
Quarter: 2017Q4

REPORT INFORMATION
  Report Type: Report from Study
  Country: JP (occurrence: JP)
  Receive Date: 20170828
  Receipt Date: 20171121
  Transmission Date: 20180320
  Serious: Yes (Other)
  Sender: FDA-Public Use
  Company Number: JP-AMGEN-JPNNI2017087174

PATIENT
  Age: 54 Year
  Sex: Female
  Weight: 56 kg

DRUGS (1)
  1. PEGFILGRASTIM [Suspect]
     Active Substance: PEGFILGRASTIM
     Indication: PRODUCT USED FOR UNKNOWN INDICATION
     Dosage: UNK
     Route: 065

REACTIONS (8)
  - Colony stimulating factor therapy [Unknown]
  - Peripheral sensory neuropathy [Not Recovered/Not Resolved]
  - Dysgeusia [Recovering/Resolving]
  - Neutropenia [Recovering/Resolving]
  - Insomnia [Recovered/Resolved]
  - Constipation [Recovered/Resolved]
  - Myalgia [Not Recovered/Not Resolved]
  - Neutropenia [Recovering/Resolving]

NARRATIVE: CASE EVENT DATE: 20160806
